FAERS Safety Report 14544393 (Version 1)
Quarter: 2018Q1

REPORT INFORMATION
  Report Type: Spontaneous
  Country: CA (occurrence: CA)
  Receive Date: 20180216
  Receipt Date: 20180216
  Transmission Date: 20180509
  Serious: Yes (Other)
  Sender: FDA-Public Use
  Company Number: CA-AMGEN-CANSP2018019284

PATIENT
  Age: 89 Year

DRUGS (4)
  1. XGEVA [Suspect]
     Active Substance: DENOSUMAB
     Indication: HYPERCALCAEMIA OF MALIGNANCY
     Dosage: UNK
     Route: 065
  2. INDERAL [Concomitant]
     Active Substance: PROPRANOLOL HYDROCHLORIDE
     Dosage: UNK
  3. PROLIA [Suspect]
     Active Substance: DENOSUMAB
     Indication: HYPERCALCAEMIA OF MALIGNANCY
     Dosage: 60 MG, UNK
     Route: 065
  4. NITRO-DUR [Concomitant]
     Active Substance: NITROGLYCERIN
     Dosage: UNK

REACTIONS (1)
  - Wrong drug administered [Unknown]

NARRATIVE: CASE EVENT DATE: 20180208
